FAERS Safety Report 18355468 (Version 3)
Quarter: 2020Q4

REPORT INFORMATION
  Report Type: Spontaneous
  Country: US (occurrence: US)
  Receive Date: 20201007
  Receipt Date: 20201110
  Transmission Date: 20210114
  Serious: Yes (Hospitalization, Other)
  Sender: FDA-Public Use
  Company Number: US-KARYOPHARM-2020KPT001164

PATIENT

DRUGS (1)
  1. XPOVIO [Suspect]
     Active Substance: SELINEXOR
     Indication: PLASMA CELL MYELOMA
     Dosage: 80 MG, WEEKLY
     Route: 048
     Dates: start: 20200918, end: 20201006

REACTIONS (7)
  - Fatigue [Unknown]
  - Thrombocytopenia [Unknown]
  - Heart rate increased [Unknown]
  - Deep vein thrombosis [Unknown]
  - Dehydration [Unknown]
  - Vomiting [Unknown]
  - Pulmonary embolism [Unknown]

NARRATIVE: CASE EVENT DATE: 202009
